FAERS Safety Report 6029527-6 (Version None)
Quarter: 2009Q1

REPORT INFORMATION
  Report Type: 
  Country: None (occurrence: None)
  Receive Date: 20090107
  Receipt Date: 20090105
  Transmission Date: 20090719
  Serious: Yes (Hospitalization)
  Sender: FDA-Public Use
  Company Number: US-ASTRAZENECA-2008UW27093

PATIENT
  Age: 82 Year
  Sex: Female
  Weight: 58.1 kg

DRUGS (8)
  1. CRESTOR [Suspect]
     Indication: BLOOD CHOLESTEROL INCREASED
     Route: 048
     Dates: start: 20080601, end: 20081001
  2. CRESTOR [Suspect]
     Route: 048
     Dates: start: 20081001
  3. CRESTOR [Suspect]
     Route: 048
     Dates: start: 20081101
  4. LOPRESSOR [Concomitant]
  5. XALATAN [Concomitant]
  6. CALCIUM [Concomitant]
  7. CENTRUM SILVER [Concomitant]
  8. PRESERVISION [Concomitant]

REACTIONS (7)
  - ARTHRALGIA [None]
  - BLOOD TRIGLYCERIDES INCREASED [None]
  - BURNING SENSATION [None]
  - COLON OPERATION [None]
  - DRUG INEFFECTIVE [None]
  - ILL-DEFINED DISORDER [None]
  - PAIN [None]
